FAERS Safety Report 7189991-6 (Version None)
Quarter: 2010Q4

REPORT INFORMATION
  Report Type: 
  Country: None (occurrence: None)
  Receive Date: 20101210
  Receipt Date: 20101124
  Transmission Date: 20110411
  Serious: Yes (Other)
  Sender: FDA-Public Use
  Company Number: DK-SEPTODONT-201000235

PATIENT
  Age: 57 Year
  Sex: Female
  Weight: 92 kg

DRUGS (1)
  1. SEPTOCAINE [Suspect]
     Indication: LOCAL ANAESTHESIA
     Dosage: DENTAL
     Route: 004
     Dates: start: 20040815

REACTIONS (1)
  - FACIAL PAIN [None]
